FAERS Safety Report 11908101 (Version 2)
Quarter: 2016Q1

REPORT INFORMATION
  Report Type: Spontaneous
  Country: BR (occurrence: BR)
  Receive Date: 20160111
  Receipt Date: 20160303
  Transmission Date: 20160526
  Serious: Yes (Other)
  Sender: FDA-Public Use
  Company Number: BR-PFIZER INC-2016006699

PATIENT
  Age: 70 Year
  Sex: Male
  Weight: 91 kg

DRUGS (2)
  1. SUTENT [Suspect]
     Active Substance: SUNITINIB MALATE
     Indication: METASTATIC RENAL CELL CARCINOMA
     Dosage: 50 MG, CYCLIC (4 WEEKS ON 2 WEEKS OFF)
     Route: 048
     Dates: start: 201510
  2. CALCIUM [Concomitant]
     Active Substance: CALCIUM
     Dosage: SOLUTION UNSPECIFIED, ONCE MONTHLY

REACTIONS (5)
  - Pallor [Not Recovered/Not Resolved]
  - Glossodynia [Unknown]
  - Yellow skin [Not Recovered/Not Resolved]
  - Lip dry [Not Recovered/Not Resolved]
  - Hypertension [Recovered/Resolved]

NARRATIVE: CASE EVENT DATE: 201512
